FAERS Safety Report 8150341-X (Version None)
Quarter: 2012Q1

REPORT INFORMATION
  Report Type: 
  Country: None (occurrence: None)
  Receive Date: 20120220
  Receipt Date: 20120215
  Transmission Date: 20120608
  Serious: Yes (Other)
  Sender: FDA-Public Use
  Company Number: US-PFIZER INC-2012041857

PATIENT
  Sex: Female
  Weight: 77.098 kg

DRUGS (2)
  1. SYNTHROID [Concomitant]
     Indication: THYROID DISORDER
     Dosage: 125 UG, DAILY
  2. PREMARIN [Suspect]
     Indication: HORMONE REPLACEMENT THERAPY
     Dosage: 0.625 MG, UNK
     Dates: start: 19720101

REACTIONS (1)
  - CATARACT [None]
